FAERS Safety Report 7491812-9 (Version None)
Quarter: 2011Q2

REPORT INFORMATION
  Report Type: 
  Country: None (occurrence: None)
  Receive Date: 20110519
  Receipt Date: 20110513
  Transmission Date: 20111010
  Serious: Yes (Hospitalization)
  Sender: FDA-Public Use
  Company Number: JP-MERCK-1103USA02878

PATIENT
  Age: 78 Year
  Sex: Male

DRUGS (3)
  1. JANUVIA [Suspect]
     Indication: DIABETES MELLITUS
     Route: 048
     Dates: start: 20110224, end: 20110311
  2. GOSHA-JINKI-GAN [Concomitant]
     Route: 048
     Dates: start: 20101109
  3. LANSOPRAZOLE [Concomitant]
     Route: 048
     Dates: start: 20101207

REACTIONS (1)
  - INTERSTITIAL LUNG DISEASE [None]
